FAERS Safety Report 9768074 (Version 2)
Quarter: 2013Q4

REPORT INFORMATION
  Report Type: Spontaneous
  Country: NL (occurrence: NL)
  Receive Date: 20131217
  Receipt Date: 20131217
  Transmission Date: 20140711
  Serious: Yes (Hospitalization)
  Sender: FDA-Public Use
  Company Number: NL-SA-POMP-1002842

PATIENT
  Age: 12 Month
  Sex: Male
  Weight: 11.1 kg

DRUGS (4)
  1. MYOZYME [Suspect]
     Indication: GLYCOGEN STORAGE DISEASE TYPE II
     Dosage: 40 MG/KG, QW
     Route: 042
     Dates: start: 20111113
  2. SULFAMETHOXAZOLE/TRIMETHOPRIM [Concomitant]
     Indication: PROPHYLAXIS
     Dosage: 18 MG/KG, UNK
     Dates: start: 20090904
  3. SALBUTAMOL [Concomitant]
     Indication: WHEEZING
     Dosage: 1200 MCG, UNK
     Dates: start: 20130206
  4. BECLOMETASONE DIPROPIONATE [Concomitant]
     Indication: WHEEZING
     Dosage: 100 MCG, UNK
     Route: 065
     Dates: start: 20130205

REACTIONS (6)
  - Respiratory syncytial virus bronchiolitis [Recovered/Resolved with Sequelae]
  - Pneumonia bacterial [Recovered/Resolved with Sequelae]
  - Hypophagia [Unknown]
  - Hyperthermia [Recovered/Resolved]
  - Tachycardia [Recovered/Resolved]
  - Hyperhidrosis [Recovered/Resolved]
